FAERS Safety Report 8178397-9 (Version None)
Quarter: 2012Q1

REPORT INFORMATION
  Report Type: 
  Country: None (occurrence: None)
  Receive Date: 20120301
  Receipt Date: 20120221
  Transmission Date: 20120608
  Serious: Yes (Death, Life-Threatening, Other)
  Sender: FDA-Public Use
  Company Number: FR-FRI-1000016835

PATIENT
  Sex: Female

DRUGS (5)
  1. TERCIAN [Suspect]
     Route: 042
     Dates: start: 20100801, end: 20100813
  2. RISPERDAL [Suspect]
     Dates: start: 20100801, end: 20100813
  3. CITALOPRAM HYDROBROMIDE [Suspect]
     Dosage: 10 MG
     Route: 048
     Dates: start: 20090201, end: 20100813
  4. LORAZEPAM [Concomitant]
     Route: 048
     Dates: start: 20100801
  5. GARDASIL [Concomitant]
     Indication: IMMUNISATION
     Route: 062
     Dates: start: 20081201, end: 20090401

REACTIONS (2)
  - NEUROLEPTIC MALIGNANT SYNDROME [None]
  - OFF LABEL USE [None]
